FAERS Safety Report 9276577 (Version 1)
Quarter: 2013Q2

REPORT INFORMATION
  Report Type: Spontaneous
  Country: US (occurrence: US)
  Receive Date: 20130507
  Receipt Date: 20130507
  Transmission Date: 20140414
  Serious: Yes (Life-Threatening, Other)
  Sender: FDA-Public Use
  Company Number: US-ASTRAZENECA-2013SE31203

PATIENT
  Age: 47 Year
  Sex: Male

DRUGS (4)
  1. SYMBICORT [Suspect]
     Indication: CHRONIC OBSTRUCTIVE PULMONARY DISEASE
     Dosage: 80/4.5 MCG OF UNKNOWN  FREQUENCY
     Route: 055
  2. LEVAQUIN [Suspect]
     Route: 065
  3. SPIRIVA [Suspect]
     Route: 065
  4. TUDORZA PRESSAIR [Suspect]
     Route: 065

REACTIONS (2)
  - Ventricular tachycardia [Recovered/Resolved]
  - Myocardial infarction [Recovering/Resolving]
